FAERS Safety Report 6075754-1 (Version None)
Quarter: 2009Q1

REPORT INFORMATION
  Report Type: 
  Country: None (occurrence: None)
  Receive Date: 20090212
  Receipt Date: 20090206
  Transmission Date: 20090719
  Serious: Yes (Death, Hospitalization)
  Sender: FDA-Public Use
  Company Number: US-CELGENEUS-163-20785-09020451

PATIENT
  Sex: Female
  Weight: 80.7 kg

DRUGS (26)
  1. THALOMID [Suspect]
     Indication: MULTIPLE MYELOMA
     Route: 048
     Dates: start: 20080101, end: 20081207
  2. THALOMID [Suspect]
     Route: 048
     Dates: start: 20080715, end: 20080101
  3. DEXAMETHASONE TAB [Suspect]
     Indication: MULTIPLE MYELOMA
     Route: 065
     Dates: start: 20080101, end: 20081224
  4. DEXAMETHASONE TAB [Suspect]
     Route: 065
     Dates: start: 20080715, end: 20080101
  5. MELPHALAN [Suspect]
     Indication: MULTIPLE MYELOMA
     Route: 065
     Dates: start: 20080925, end: 20081221
  6. PRIMAXIN [Concomitant]
     Route: 051
     Dates: start: 20090107, end: 20090131
  7. TAMIFLU [Concomitant]
     Indication: DRUG USE FOR UNKNOWN INDICATION
     Route: 048
  8. ACYCLOVIR [Concomitant]
     Indication: DRUG USE FOR UNKNOWN INDICATION
     Route: 048
  9. PROTONIX [Concomitant]
     Indication: DRUG USE FOR UNKNOWN INDICATION
     Route: 048
  10. SYNTHROID [Concomitant]
     Indication: DRUG USE FOR UNKNOWN INDICATION
     Route: 048
  11. CENTRUM SILVER [Concomitant]
     Indication: DRUG USE FOR UNKNOWN INDICATION
     Route: 048
  12. VITAMIN B-12 [Concomitant]
     Indication: DRUG USE FOR UNKNOWN INDICATION
     Route: 048
  13. AMBIEN [Concomitant]
     Indication: DRUG USE FOR UNKNOWN INDICATION
     Route: 048
  14. PROMETHAZINE HCL [Concomitant]
     Indication: DRUG USE FOR UNKNOWN INDICATION
     Route: 048
  15. ATIVAN [Concomitant]
     Indication: NAUSEA
     Route: 048
  16. OXYCODONE HCL [Concomitant]
     Indication: PAIN
     Route: 048
  17. XANAX [Concomitant]
     Indication: ANXIETY
     Route: 048
  18. MEGACE [Concomitant]
     Indication: DRUG USE FOR UNKNOWN INDICATION
     Route: 048
  19. BENTYL [Concomitant]
     Dosage: 10 MG -20 MG
     Route: 048
  20. ALDACTONE [Concomitant]
     Indication: DRUG USE FOR UNKNOWN INDICATION
     Route: 048
  21. POTASSIUM CHLORIDE [Concomitant]
     Indication: DRUG USE FOR UNKNOWN INDICATION
     Route: 048
  22. GUAIFENESIN [Concomitant]
     Indication: COUGH
     Dosage: 1-2 TSP 10MG/5ML
     Route: 048
  23. VANCOMYCIN HCL [Concomitant]
     Route: 051
     Dates: start: 20090113, end: 20090131
  24. CYTOVENE [Concomitant]
     Route: 051
     Dates: start: 20090113, end: 20090131
  25. AMBISOME [Concomitant]
     Route: 051
     Dates: start: 20090113, end: 20090131
  26. HEP-LOCK [Concomitant]
     Indication: DRUG USE FOR UNKNOWN INDICATION
     Route: 050

REACTIONS (6)
  - CEREBRAL INFARCTION [None]
  - DEATH [None]
  - DEEP VEIN THROMBOSIS [None]
  - LUNG INFILTRATION [None]
  - RESPIRATORY FAILURE [None]
  - RESPIRATORY SYNCYTIAL VIRUS INFECTION [None]
